FAERS Safety Report 7797018-8 (Version None)
Quarter: 2011Q4

REPORT INFORMATION
  Report Type: 
  Country: None (occurrence: None)
  Receive Date: 20111005
  Receipt Date: 20110929
  Transmission Date: 20120403
  Serious: Yes (Other)
  Sender: FDA-Public Use
  Company Number: JP-PFIZER INC-2011233215

PATIENT
  Age: 74 Year
  Sex: Male

DRUGS (6)
  1. LEVOTHYROXINE SODIUM [Concomitant]
  2. LYRICA [Suspect]
     Dosage: 75 MG DAILY
     Route: 048
     Dates: start: 20110101
  3. LOSARTAN POTASSIUM [Concomitant]
  4. WARFARIN SODIUM [Interacting]
     Dosage: UNK
  5. ASPIRIN [Concomitant]
  6. ALLOPURINOL [Concomitant]

REACTIONS (3)
  - INTERNATIONAL NORMALISED RATIO DECREASED [None]
  - RENAL IMPAIRMENT [None]
  - DRUG INTERACTION [None]
